FAERS Safety Report 22129624 (Version 1)
Quarter: 2023Q1

REPORT INFORMATION
  Report Type: Spontaneous
  Country: US (occurrence: US)
  Receive Date: 20230323
  Receipt Date: 20230323
  Transmission Date: 20230418
  Serious: Yes (Death, Other)
  Sender: FDA-Public Use
  Company Number: US-MYLANLABS-202200751383

PATIENT
  Age: 28 Year
  Sex: Male

DRUGS (30)
  1. ALPRAZOLAM [Suspect]
     Active Substance: ALPRAZOLAM
     Indication: Psychiatric symptom
     Dosage: UNK
     Route: 065
  2. VENLAFAXINE [Suspect]
     Active Substance: VENLAFAXINE HYDROCHLORIDE
     Indication: Psychiatric symptom
     Dosage: UNK
     Route: 065
  3. ZOLPIDEM [Suspect]
     Active Substance: ZOLPIDEM TARTRATE
     Indication: Psychiatric symptom
     Dosage: UNK
     Route: 065
  4. ARIPIPRAZOLE [Suspect]
     Active Substance: ARIPIPRAZOLE
     Indication: Psychiatric symptom
     Dosage: UNK
     Route: 065
  5. BUSPIRONE [Suspect]
     Active Substance: BUSPIRONE HYDROCHLORIDE
     Indication: Psychiatric symptom
     Dosage: UNK
     Route: 065
  6. CITALOPRAM [Suspect]
     Active Substance: CITALOPRAM HYDROBROMIDE
     Indication: Psychiatric symptom
     Dosage: UNK
     Route: 065
  7. CLOMIPRAMINE [Suspect]
     Active Substance: CLOMIPRAMINE
     Indication: Psychiatric symptom
     Dosage: UNK
     Route: 065
  8. ESCITALOPRAM [Suspect]
     Active Substance: ESCITALOPRAM OXALATE
     Indication: Psychiatric symptom
     Dosage: UNK
     Route: 065
  9. FLUOXETINE [Suspect]
     Active Substance: FLUOXETINE HYDROCHLORIDE
     Indication: Psychiatric symptom
     Dosage: UNK
     Route: 065
  10. FLUVOXAMINE [Suspect]
     Active Substance: FLUVOXAMINE
     Indication: Psychiatric symptom
     Dosage: UNK
     Route: 065
  11. LAMOTRIGINE [Suspect]
     Active Substance: LAMOTRIGINE
     Indication: Psychiatric symptom
     Dosage: UNK
     Route: 065
  12. METHYLPHENIDATE [Suspect]
     Active Substance: METHYLPHENIDATE
     Indication: Psychiatric symptom
     Dosage: UNK
     Route: 065
  13. MIRTAZAPINE [Suspect]
     Active Substance: MIRTAZAPINE
     Indication: Psychiatric symptom
     Dosage: UNK
     Route: 065
  14. MODAFINIL [Suspect]
     Active Substance: MODAFINIL
     Indication: Psychiatric symptom
     Dosage: UNK
     Route: 065
  15. OLANZAPINE [Suspect]
     Active Substance: OLANZAPINE
     Indication: Psychiatric symptom
     Dosage: UNK
     Route: 065
  16. PAROXETINE [Suspect]
     Active Substance: PAROXETINE
     Indication: Psychiatric symptom
     Dosage: UNK
     Route: 065
  17. SELEGILINE [Suspect]
     Active Substance: SELEGILINE
     Indication: Psychiatric symptom
     Dosage: UNK
     Route: 062
  18. TOPIRAMATE [Suspect]
     Active Substance: TOPIRAMATE
     Indication: Psychiatric symptom
     Dosage: UNK
     Route: 065
  19. TRAZODONE [Suspect]
     Active Substance: TRAZODONE HYDROCHLORIDE
     Indication: Psychiatric symptom
     Dosage: UNK
     Route: 065
  20. VORTIOXETINE [Suspect]
     Active Substance: VORTIOXETINE
     Indication: Psychiatric symptom
     Dosage: UNK
     Route: 065
  21. KETAMINE [Suspect]
     Active Substance: KETAMINE
     Indication: Depression
     Dosage: 7 INFUSIONS , Q3W
     Route: 042
  22. DULOXETINE [Suspect]
     Active Substance: DULOXETINE
     Indication: Psychiatric symptom
     Dosage: UNK
     Route: 065
  23. CLONAZEPAM [Concomitant]
     Active Substance: CLONAZEPAM
     Indication: Anxiety
     Dosage: 1 MG, DAILY (AS NEEDED)
     Route: 065
  24. DIVALPROEX SODIUM [Concomitant]
     Active Substance: DIVALPROEX SODIUM
     Indication: Psychiatric symptom
     Dosage: UNK
     Route: 065
  25. QUETIAPINE [Concomitant]
     Active Substance: QUETIAPINE
     Indication: Product used for unknown indication
     Dosage: 100 MG, NIGHTLY
     Route: 065
  26. DEXMETHYLPHENIDATE [Concomitant]
     Active Substance: DEXMETHYLPHENIDATE
     Indication: Product used for unknown indication
     Dosage: 10 MG, DAILY
     Route: 065
  27. ARMODAFINIL [Concomitant]
     Active Substance: ARMODAFINIL
     Indication: Product used for unknown indication
     Dosage: 250 MG, DAILY
     Route: 065
  28. TESTOSTERONE [Concomitant]
     Active Substance: TESTOSTERONE
     Indication: Blood testosterone decreased
     Dosage: 20.25 MG/1.25 GR (1.62%) TRANSDERMAL GEL PUMP (3 PUMPS PER DAY)
     Route: 062
  29. METFORMIN [Concomitant]
     Active Substance: METFORMIN HYDROCHLORIDE
     Indication: Product used for unknown indication
     Dosage: 500 MG, DAILY
     Route: 065
  30. LEVOTHYROXINE [Concomitant]
     Active Substance: LEVOTHYROXINE
     Indication: Hypothyroidism
     Dosage: 75 UG, DAILY
     Route: 065

REACTIONS (4)
  - Completed suicide [Fatal]
  - Condition aggravated [Unknown]
  - Suicidal ideation [Unknown]
  - Drug ineffective [Unknown]
